FAERS Safety Report 9544261 (Version 2)
Quarter: 2013Q4

REPORT INFORMATION
  Report Type: Report from Study
  Country: CL (occurrence: CL)
  Receive Date: 20130923
  Receipt Date: 20131122
  Transmission Date: 20140711
  Serious: Yes (Hospitalization, Other)
  Sender: FDA-Public Use
  Company Number: CL-ABBVIE-13P-034-1148305-00

PATIENT
  Age: 63 Year
  Sex: Female
  Weight: 72 kg

DRUGS (4)
  1. HUMIRA [Suspect]
     Indication: RHEUMATOID ARTHRITIS
     Route: 058
     Dates: start: 20121219, end: 201308
  2. HUMIRA [Suspect]
     Route: 058
     Dates: start: 20131108
  3. KETOPROFEN [Concomitant]
     Indication: PAIN
     Dosage: S.O.S
     Route: 048
  4. PARACETAMOL/TRAMADOLI HYDROCHLORIDE [Concomitant]
     Indication: PAIN
     Dosage: S.O.S.
     Route: 048

REACTIONS (3)
  - Ligament rupture [Recovered/Resolved]
  - Tendon rupture [Recovered/Resolved]
  - Road traffic accident [Unknown]
